FAERS Safety Report 5839679-6 (Version None)
Quarter: 2008Q3

REPORT INFORMATION
  Report Type: 
  Country: None (occurrence: None)
  Receive Date: 20080811
  Receipt Date: 20080807
  Transmission Date: 20090109
  Serious: Yes (Hospitalization)
  Sender: FDA-Public Use
  Company Number: PHEH2000US02564

PATIENT
  Sex: Male
  Weight: 68.1 kg

DRUGS (2)
  1. MYCOPHENOLIC ACID [Suspect]
     Dosage: CODE NOT BROKEN
     Route: 048
     Dates: start: 19991015
  2. MYCOPHENOLIC ACID [Suspect]
     Dosage: 720  MG, BID

REACTIONS (2)
  - CYTOMEGALOVIRUS INFECTION [None]
  - PYREXIA [None]
